FAERS Safety Report 23322187 (Version 1)
Quarter: 2023Q4

REPORT INFORMATION
  Report Type: Spontaneous
  Country: TR (occurrence: TR)
  Receive Date: 20231220
  Receipt Date: 20231220
  Transmission Date: 20240109
  Serious: Yes (Other)
  Sender: FDA-Public Use
  Company Number: TR-002147023-NVSC2023TR267821

PATIENT
  Age: 70 Year
  Sex: Female

DRUGS (3)
  1. AZOPT [Suspect]
     Active Substance: BRINZOLAMIDE
     Indication: Intraocular pressure increased
     Dosage: UNK
     Route: 047
  2. AZOPT [Suspect]
     Active Substance: BRINZOLAMIDE
     Indication: Dry eye
  3. AZOPT [Suspect]
     Active Substance: BRINZOLAMIDE
     Indication: Glaucoma

REACTIONS (3)
  - Glaucoma [Unknown]
  - Product dose omission issue [Unknown]
  - Product supply issue [Unknown]
